FAERS Safety Report 9592944 (Version 1)
Quarter: 2013Q3

REPORT INFORMATION
  Report Type: Spontaneous
  Country: US (occurrence: None)
  Receive Date: 20130930
  Receipt Date: 20130930
  Transmission Date: 20140515
  Serious: Yes (Other)
  Sender: FDA-Public Use
  Company Number: 1000046898

PATIENT
  Age: 53 Year
  Sex: Male

DRUGS (5)
  1. LINZESS [Suspect]
     Indication: CONSTIPATION
     Dosage: 145 MCG, 1 IN 1 D
     Route: 048
     Dates: start: 20130705, end: 20130717
  2. SAVELLA [Suspect]
     Indication: ARTHRITIS
     Dosage: 25 MG, 1 IN 1 D
     Route: 048
     Dates: start: 20130714
  3. MELOXICAM [Concomitant]
  4. OMEPRAZOLE [Concomitant]
  5. ONDANSETRON [Concomitant]

REACTIONS (4)
  - Diarrhoea [None]
  - Off label use [None]
  - Dysuria [None]
  - Micturition urgency [None]
